FAERS Safety Report 24551715 (Version 1)
Quarter: 2024Q4

REPORT INFORMATION
  Report Type: Spontaneous
  Country: CN (occurrence: CN)
  Receive Date: 20241026
  Receipt Date: 20241026
  Transmission Date: 20250115
  Serious: Yes (Other)
  Sender: ABBVIE
  Company Number: CN-ABBVIE-5974186

PATIENT
  Age: 62 Year
  Sex: Male
  Weight: 42 kg

DRUGS (4)
  1. VENCLEXTA [Suspect]
     Active Substance: VENETOCLAX
     Indication: Acute monocytic leukaemia
     Route: 048
     Dates: start: 20241003, end: 20241021
  2. VENCLEXTA [Suspect]
     Active Substance: VENETOCLAX
     Indication: Acute monocytic leukaemia
     Route: 048
     Dates: start: 20241002, end: 20241002
  3. VENCLEXTA [Suspect]
     Active Substance: VENETOCLAX
     Indication: Acute monocytic leukaemia
     Route: 048
     Dates: start: 20241001, end: 20241001
  4. AZACITIDINE [Suspect]
     Active Substance: AZACITIDINE
     Indication: Acute monocytic leukaemia
     Route: 058
     Dates: start: 20241001, end: 20241007

REACTIONS (1)
  - Myelosuppression [Recovering/Resolving]

NARRATIVE: CASE EVENT DATE: 20241005
